FAERS Safety Report 21932216 (Version 1)
Quarter: 2023Q1

REPORT INFORMATION
  Report Type: Spontaneous
  Country: US (occurrence: US)
  Receive Date: 20230131
  Receipt Date: 20230131
  Transmission Date: 20230417
  Serious: Yes (Other)
  Sender: FDA-Public Use
  Company Number: US-BAYER-2023P005004

PATIENT
  Age: 50 Year
  Sex: Male

DRUGS (1)
  1. COPANLISIB [Suspect]
     Active Substance: COPANLISIB
     Indication: Follicular lymphoma
     Dosage: ONCE WEEKLY FOR 3 CONSECUTIVE WEEKS WITH 1 WEEK OFF ON A 28-DAY CYCLE
     Route: 042

REACTIONS (1)
  - Diabetes mellitus inadequate control [None]
